FAERS Safety Report 6254397-0 (Version None)
Quarter: 2009Q3

REPORT INFORMATION
  Report Type: 
  Country: None (occurrence: None)
  Receive Date: 20090702
  Receipt Date: 20090625
  Transmission Date: 20100115
  Serious: Yes (Hospitalization)
  Sender: FDA-Public Use
  Company Number: AU-BIOGENIDEC-2009BI010847

PATIENT
  Age: 52 Year
  Sex: Female

DRUGS (6)
  1. TYSABRI [Suspect]
     Indication: RELAPSING-REMITTING MULTIPLE SCLEROSIS
     Route: 042
     Dates: start: 20090116, end: 20090315
  2. OMEPRAZOL [Concomitant]
     Indication: GASTROOESOPHAGEAL REFLUX DISEASE
  3. CITALOPRAM HYDROBROMIDE [Concomitant]
     Indication: DEPRESSION
  4. AMITRIPTYLINE HCL [Concomitant]
     Indication: DEPRESSION
  5. ESTRADERM [Concomitant]
     Indication: MENOPAUSE
  6. CARBAMAZEPINE [Concomitant]
     Indication: PAIN

REACTIONS (2)
  - ASTHMA LATE ONSET [None]
  - EOSINOPHILIA [None]
